FAERS Safety Report 25042924 (Version 2)
Quarter: 2025Q2

REPORT INFORMATION
  Report Type: Spontaneous
  Country: JP (occurrence: JP)
  Receive Date: 20250305
  Receipt Date: 20250609
  Transmission Date: 20250717
  Serious: Yes (Death, Hospitalization, Other)
  Sender: MERCK SHARP & DOHME LLC
  Company Number: JP-MSD-2405JPN003610J

PATIENT
  Age: 57 Year
  Sex: Female

DRUGS (5)
  1. KEYTRUDA [Suspect]
     Active Substance: PEMBROLIZUMAB
     Indication: Uterine cancer
     Route: 065
     Dates: start: 20240614
  2. KEYTRUDA [Suspect]
     Active Substance: PEMBROLIZUMAB
     Indication: Uterine cancer
     Route: 065
     Dates: start: 2022, end: 2024
  3. LENVATINIB MESYLATE [Suspect]
     Active Substance: LENVATINIB MESYLATE
     Indication: Uterine cancer
     Dosage: DOSE DESCRIPTION : 10 MILLIGRAM, QOD?DAILY DOSE : 5 MILLIGRAM?CONCENTRATION: 10 MILLIGRAM?REGIMEN...
     Route: 065
     Dates: start: 20240501, end: 2024
  4. LENVATINIB MESYLATE [Suspect]
     Active Substance: LENVATINIB MESYLATE
     Indication: Uterine cancer
     Dosage: DOSE DESCRIPTION : 10 MILLIGRAM, QOD?DAILY DOSE : 5 MILLIGRAM?REGIMEN DOSE : 10  MILLIGRAM
     Route: 065
     Dates: start: 20240614
  5. LENVATINIB MESYLATE [Suspect]
     Active Substance: LENVATINIB MESYLATE
     Indication: Uterine cancer
     Route: 065
     Dates: start: 2022

REACTIONS (6)
  - Malignant neoplasm progression [Fatal]
  - Pneumothorax [Recovered/Resolved]
  - Pleural effusion [Recovered/Resolved]
  - Fistula [Unknown]
  - Infectious pleural effusion [Unknown]
  - Tumour rupture [Unknown]

NARRATIVE: CASE EVENT DATE: 20240101
